FAERS Safety Report 23690985 (Version 1)
Quarter: 2024Q2

REPORT INFORMATION
  Report Type: Spontaneous
  Country: CA (occurrence: CA)
  Receive Date: 20240401
  Receipt Date: 20240401
  Transmission Date: 20240716
  Serious: Yes (Other)
  Sender: FDA-Public Use
  Company Number: CA-GENEYORK-2024PPLIT00022

PATIENT
  Age: 35 Year
  Sex: Female

DRUGS (6)
  1. PREDNISONE [Suspect]
     Active Substance: PREDNISONE
     Indication: Asthma
     Route: 065
  2. FLUTICASONE FUROATE AND VILANTEROL [Suspect]
     Active Substance: FLUTICASONE FUROATE\VILANTEROL TRIFENATATE
     Indication: Asthma
     Route: 065
  3. OMALIZUMAB [Suspect]
     Active Substance: OMALIZUMAB
     Indication: Asthma
     Route: 065
     Dates: start: 2009
  4. DUPILUMAB [Suspect]
     Active Substance: DUPILUMAB
     Indication: Asthma
     Route: 065
     Dates: start: 2018
  5. MIRTAZAPINE [Suspect]
     Active Substance: MIRTAZAPINE
     Indication: Asthma
     Route: 065
  6. TIOTROPIUM [Suspect]
     Active Substance: TIOTROPIUM
     Indication: Asthma
     Route: 065

REACTIONS (2)
  - Steroid diabetes [Unknown]
  - Maternal exposure during pregnancy [Unknown]
